FAERS Safety Report 5355310-0 (Version None)
Quarter: 2007Q2

REPORT INFORMATION
  Report Type: 
  Country: None (occurrence: None)
  Receive Date: 20070611
  Receipt Date: 20070530
  Transmission Date: 20071010
  Serious: Yes (Hospitalization)
  Sender: FDA-Public Use
  Company Number: B0474210A

PATIENT
  Age: 43 Year
  Sex: Female

DRUGS (4)
  1. LITHIUM SALT (FORMULATION UNKNOWN) (GENERIC) (LITHIUM SALT) [Suspect]
     Dosage: 600 MG / TWICE PER DAY
  2. NAPROXEN SODIUM [Concomitant]
  3. AMITRIPTYLINE HCL [Concomitant]
  4. MIRTAZAPINE [Concomitant]

REACTIONS (14)
  - ATRIOVENTRICULAR BLOCK SECOND DEGREE [None]
  - BLOOD CREATININE INCREASED [None]
  - DEHYDRATION [None]
  - DRUG TOXICITY [None]
  - ELECTROCARDIOGRAM T WAVE AMPLITUDE DECREASED [None]
  - HAEMODIALYSIS [None]
  - HYPOKALAEMIA [None]
  - HYPOTENSION [None]
  - HYPOTHERMIA [None]
  - METABOLIC ACIDOSIS [None]
  - NEPHROPATHY TOXIC [None]
  - RENAL FAILURE [None]
  - SINOATRIAL BLOCK [None]
  - SINUS BRADYCARDIA [None]
